FAERS Safety Report 23803191 (Version 1)
Quarter: 2024Q2

REPORT INFORMATION
  Report Type: Spontaneous
  Country: US (occurrence: None)
  Receive Date: 20240430
  Receipt Date: 20240430
  Transmission Date: 20240716
  Serious: No
  Sender: FDA-Public Use
  Company Number: None

PATIENT
  Age: 27 Year
  Sex: Female
  Weight: 43.2 kg

DRUGS (3)
  1. KETAMINE [Suspect]
     Active Substance: KETAMINE
     Indication: Neck pain
  2. KETAMINE [Suspect]
     Active Substance: KETAMINE
     Indication: Injury
  3. KETAMINE [Suspect]
     Active Substance: KETAMINE
     Indication: Depression

REACTIONS (10)
  - Therapeutic product effect decreased [None]
  - Bladder disorder [None]
  - Urinary tract disorder [None]
  - Mental disorder [None]
  - Bladder pain [None]
  - Depression [None]
  - Vomiting [None]
  - Pelvic pain [None]
  - Genital disorder [None]
  - Quality of life decreased [None]

NARRATIVE: CASE EVENT DATE: 20231115
